FAERS Safety Report 16665146 (Version 3)
Quarter: 2019Q3

REPORT INFORMATION
  Report Type: Spontaneous
  Country: PT (occurrence: PT)
  Receive Date: 20190803
  Receipt Date: 20190830
  Transmission Date: 20191004
  Serious: Yes (Hospitalization, Disabling, Other)
  Sender: FDA-Public Use
  Company Number: PT-AUROBINDO-AUR-APL-2019-045285

PATIENT

DRUGS (16)
  1. SILDENAFIL. [Suspect]
     Active Substance: SILDENAFIL
     Indication: VASODILATION PROCEDURE
  2. BOSENTAN. [Suspect]
     Active Substance: BOSENTAN
     Indication: VASODILATION PROCEDURE
  3. VENTAVIS [Suspect]
     Active Substance: ILOPROST
     Indication: VASODILATATION
     Dosage: 1 DOSAGE FORM, 1 MONTH
     Route: 065
  4. NIFEDIPINE. [Suspect]
     Active Substance: NIFEDIPINE
     Indication: VASODILATATION
     Dosage: UNK
     Route: 065
  5. CYCLOPHOSPHAMIDE. [Concomitant]
     Active Substance: CYCLOPHOSPHAMIDE
     Indication: PRODUCT USED FOR UNKNOWN INDICATION
     Dosage: UNK
     Route: 065
  6. VENTAVIS [Suspect]
     Active Substance: ILOPROST
     Indication: VASODILATION PROCEDURE
  7. ILOPROST. [Suspect]
     Active Substance: ILOPROST
     Indication: VASODILATATION
     Dosage: 1 DOSAGE FORM,1 MONTH
     Route: 042
  8. PENTOXIFYLLINE. [Suspect]
     Active Substance: PENTOXIFYLLINE
     Indication: VASODILATION PROCEDURE
  9. BOSENTAN. [Suspect]
     Active Substance: BOSENTAN
     Indication: VASODILATATION
     Dosage: UNK
     Route: 048
  10. PENTOXIFYLLINE. [Suspect]
     Active Substance: PENTOXIFYLLINE
     Indication: VASODILATATION
     Dosage: UNK
     Route: 065
  11. NITROGLYCERIN. [Suspect]
     Active Substance: NITROGLYCERIN
     Indication: VASODILATION PROCEDURE
  12. SILDENAFIL. [Suspect]
     Active Substance: SILDENAFIL
     Indication: VASODILATATION
     Dosage: UNK
     Route: 065
  13. SILDENAFIL. [Suspect]
     Active Substance: SILDENAFIL
     Indication: PULMONARY ARTERIAL HYPERTENSION
  14. NIFEDIPINE. [Suspect]
     Active Substance: NIFEDIPINE
     Indication: VASODILATION PROCEDURE
  15. VENTAVIS [Suspect]
     Active Substance: ILOPROST
     Indication: PULMONARY FIBROSIS
  16. NITROGLYCERIN. [Suspect]
     Active Substance: NITROGLYCERIN
     Indication: VASODILATATION
     Dosage: UNK
     Route: 065

REACTIONS (5)
  - Sepsis [Unknown]
  - Pneumonia [Unknown]
  - Finger amputation [Unknown]
  - Haematotoxicity [Unknown]
  - Drug ineffective for unapproved indication [Unknown]
